FAERS Safety Report 22151624 (Version 1)
Quarter: 2023Q1

REPORT INFORMATION
  Report Type: Spontaneous
  Country: US (occurrence: None)
  Receive Date: 20230328
  Receipt Date: 20230328
  Transmission Date: 20230418
  Serious: No
  Sender: FDA-Public Use
  Company Number: None

PATIENT
  Sex: Female

DRUGS (2)
  1. COSENTYX [Suspect]
     Active Substance: SECUKINUMAB
     Indication: Ankylosing spondylitis
     Dosage: 300MG EVERY 4 WEEKS SUBCUTANEOUS
     Route: 058
     Dates: start: 20210915
  2. COSENTYX [Suspect]
     Active Substance: SECUKINUMAB
     Indication: Spinal disorder

REACTIONS (2)
  - Condition aggravated [None]
  - Loss of therapeutic response [None]
